FAERS Safety Report 25498557 (Version 2)
Quarter: 2025Q3

REPORT INFORMATION
  Report Type: Report from Study
  Country: BR (occurrence: BR)
  Receive Date: 20250701
  Receipt Date: 20250815
  Transmission Date: 20251021
  Serious: No
  Sender: BIOGEN
  Company Number: BR-BIOGEN-2025BI01312658

PATIENT
  Sex: Female

DRUGS (3)
  1. TYSABRI [Suspect]
     Active Substance: NATALIZUMAB
     Indication: Multiple sclerosis
     Dosage: STARTED APPROX. 5 YEARS AGO
     Route: 050
     Dates: start: 202112, end: 202208
  2. TYSABRI [Suspect]
     Active Substance: NATALIZUMAB
     Dosage: RESTARTED
     Route: 050
     Dates: start: 202303
  3. ETHINYL ESTRADIOL\LEVONORGESTREL [Concomitant]
     Active Substance: ETHINYL ESTRADIOL\LEVONORGESTREL
     Indication: Contraception
     Route: 050
     Dates: start: 2020

REACTIONS (2)
  - Multiple sclerosis relapse [Unknown]
  - Vitamin D decreased [Recovered/Resolved]
